FAERS Safety Report 25264149 (Version 1)
Quarter: 2025Q2

REPORT INFORMATION
  Report Type: Spontaneous
  Country: US (occurrence: US)
  Receive Date: 20250502
  Receipt Date: 20250502
  Transmission Date: 20250717
  Serious: No
  Sender: INSUD PHARMA
  Company Number: US-INSUD PHARMA-2504US03210

PATIENT

DRUGS (7)
  1. ENILLORING [Interacting]
     Active Substance: ETHINYL ESTRADIOL\ETONOGESTREL
     Indication: Contraception
     Route: 067
     Dates: start: 2025
  2. ENILLORING [Interacting]
     Active Substance: ETHINYL ESTRADIOL\ETONOGESTREL
     Indication: Menstrual cycle management
  3. WAKIX [Interacting]
     Active Substance: PITOLISANT HYDROCHLORIDE
     Indication: Somnolence
     Route: 065
     Dates: start: 2024
  4. ZYRTEC [Concomitant]
     Active Substance: CETIRIZINE HYDROCHLORIDE
     Indication: Seasonal allergy
  5. FLUOXETINE [Concomitant]
     Active Substance: FLUOXETINE HYDROCHLORIDE
     Indication: Anxiety
     Dosage: UNK UNK, QD
  6. FLUOXETINE [Concomitant]
     Active Substance: FLUOXETINE HYDROCHLORIDE
     Indication: Depression
  7. XYWAV [Concomitant]
     Active Substance: CALCIUM OXYBATE\MAGNESIUM OXYBATE\POTASSIUM OXYBATE\SODIUM OXYBATE
     Indication: Somnolence

REACTIONS (3)
  - Intermenstrual bleeding [Not Recovered/Not Resolved]
  - Labelled drug-drug interaction issue [Unknown]
  - Product use in unapproved indication [Unknown]

NARRATIVE: CASE EVENT DATE: 20250101
